FAERS Safety Report 8773120 (Version 2)
Quarter: 2012Q4

REPORT INFORMATION
  Report Type: Report from Study
  Country: GB (occurrence: GB)
  Receive Date: 20120907
  Receipt Date: 20120912
  Transmission Date: 20130627
  Serious: Yes (Hospitalization)
  Sender: FDA-Public Use
  Company Number: GB-ROCHE-1113121

PATIENT
  Age: 66 Year
  Sex: Female
  Weight: 50.8 kg

DRUGS (10)
  1. PERTUZUMAB [Suspect]
     Indication: BREAST CANCER
     Dosage: Date of last dose prior to SAE: 09/Aug/2012
     Route: 042
     Dates: start: 20120301, end: 20120829
  2. HERCEPTIN [Suspect]
     Indication: BREAST CANCER
     Dosage: Last date prior to SAE: 09/Aug/2012
     Route: 042
     Dates: start: 20120302, end: 20120829
  3. XELODA [Suspect]
     Indication: BREAST CANCER
     Dosage: Date of last dose prior to SAE: 23/Aug/2012
     Route: 048
     Dates: start: 20120302, end: 20120829
  4. METOCLOPRAMIDE [Concomitant]
     Route: 065
     Dates: start: 20120411
  5. ONDANSETRON [Concomitant]
     Route: 065
     Dates: start: 20120419
  6. OMEPRAZOLE [Concomitant]
     Route: 065
     Dates: start: 20120411
  7. OXYCONTIN [Concomitant]
     Route: 065
     Dates: start: 201010
  8. OXYNORM [Concomitant]
     Route: 065
     Dates: start: 201010
  9. PARACETAMOL [Concomitant]
     Route: 065
     Dates: start: 2010
  10. SENNA [Concomitant]
     Route: 065
     Dates: start: 20120408

REACTIONS (1)
  - Abdominal pain upper [Unknown]
